FAERS Safety Report 25823944 (Version 1)
Quarter: 2025Q3

REPORT INFORMATION
  Report Type: Spontaneous
  Country: US (occurrence: None)
  Receive Date: 20250919
  Receipt Date: 20250919
  Transmission Date: 20251020
  Serious: Yes (Hospitalization)
  Sender: FDA-CTU
  Company Number: None

PATIENT
  Sex: Male

DRUGS (5)
  1. PULMOZYME [Suspect]
     Active Substance: DORNASE ALFA
     Indication: Cystic fibrosis
     Dosage: FREQUENCY : DAILY;?
     Route: 055
     Dates: start: 20170927
  2. IRON [Concomitant]
     Active Substance: IRON
  3. PROGRAF [Concomitant]
     Active Substance: TACROLIMUS
  4. TOBRAMYCIN [Concomitant]
     Active Substance: TOBRAMYCIN
  5. ZEGERID [Concomitant]
     Active Substance: OMEPRAZOLE\SODIUM BICARBONATE

REACTIONS (5)
  - Productive cough [None]
  - Productive cough [None]
  - Dyspepsia [None]
  - Weight decreased [None]
  - Loss of personal independence in daily activities [None]
